FAERS Safety Report 19924731 (Version 2)
Quarter: 2021Q4

REPORT INFORMATION
  Report Type: Spontaneous
  Country: US (occurrence: US)
  Receive Date: 20211006
  Receipt Date: 20211219
  Transmission Date: 20220303
  Serious: Yes (Other)
  Sender: FDA-Public Use
  Company Number: US-JNJFOC-20210955182

PATIENT
  Age: 75 Year
  Sex: Female
  Weight: 68.100 kg

DRUGS (5)
  1. REMICADE [Suspect]
     Active Substance: INFLIXIMAB
     Indication: Crohn^s disease
     Dosage: UNIT DOSE: 350 UNSPECIFIED UNITS.
     Route: 042
     Dates: start: 20210202
  2. IMURAN [Concomitant]
     Active Substance: AZATHIOPRINE
     Dosage: HALF PILL
     Dates: end: 20210907
  3. PREDNISONE [Concomitant]
     Active Substance: PREDNISONE
     Dosage: 1.5 PILLS
     Dates: end: 20210624
  4. MODERNA COVID-19 VACCINE [Concomitant]
     Active Substance: ELASOMERAN
     Dates: start: 20210209
  5. MODERNA COVID-19 VACCINE [Concomitant]
     Active Substance: ELASOMERAN
     Dates: start: 20210309

REACTIONS (3)
  - Crohn^s disease [Not Recovered/Not Resolved]
  - Dental caries [Not Recovered/Not Resolved]
  - Therapeutic response decreased [Unknown]

NARRATIVE: CASE EVENT DATE: 20210101
